FAERS Safety Report 14838912 (Version 2)
Quarter: 2018Q2

REPORT INFORMATION
  Report Type: Spontaneous
  Country: US (occurrence: US)
  Receive Date: 20180502
  Receipt Date: 20180622
  Transmission Date: 20180711
  Serious: No
  Sender: FDA-Public Use
  Company Number: US-GLAXOSMITHKLINE-US2018075784

PATIENT
  Sex: Female

DRUGS (5)
  1. CARTIA (DILTIAZEM HYDROCHLORIDE) [Concomitant]
  2. TRELEGY ELLIPTA [Suspect]
     Active Substance: FLUTICASONE FUROATE\UMECLIDINIUM BROMIDE\VILANTEROL TRIFENATATE
     Indication: CHRONIC OBSTRUCTIVE PULMONARY DISEASE
     Dosage: 1 PUFF(S), QD
     Route: 055
     Dates: start: 201803
  3. LORAZEPAM. [Concomitant]
     Active Substance: LORAZEPAM
  4. METHYLPREDNISOLONE. [Suspect]
     Active Substance: METHYLPREDNISOLONE
  5. SIMVASTATIN. [Suspect]
     Active Substance: SIMVASTATIN

REACTIONS (2)
  - Dizziness [Recovered/Resolved]
  - Balance disorder [Unknown]
